FAERS Safety Report 8524819-0 (Version None)
Quarter: 2012Q3

REPORT INFORMATION
  Report Type: 
  Country: None (occurrence: None)
  Receive Date: 20120720
  Receipt Date: 20120710
  Transmission Date: 20120928
  Serious: Yes (Other)
  Sender: FDA-Public Use
  Company Number: JP-GLAXOSMITHKLINE-B0814522A

PATIENT
  Age: 82 Year
  Sex: Male

DRUGS (3)
  1. VALTREX [Suspect]
     Indication: HERPES ZOSTER
     Dosage: 1000MG PER DAY
     Route: 048
     Dates: start: 20120706, end: 20120708
  2. UNKNOWN [Concomitant]
     Route: 065
  3. ARASENA-A [Concomitant]

REACTIONS (5)
  - NERVOUS SYSTEM DISORDER [None]
  - IRRITABILITY [None]
  - ABNORMAL BEHAVIOUR [None]
  - STRESS [None]
  - INTENTIONAL SELF-INJURY [None]
